FAERS Safety Report 8642980 (Version 2)
Quarter: 2012Q4

REPORT INFORMATION
  Report Type: Report from Study
  Country: FR (occurrence: FR)
  Receive Date: 20120629
  Receipt Date: 20120918
  Transmission Date: 20130627
  Serious: Yes (Hospitalization)
  Sender: FDA-Public Use
  Company Number: FR-JNJFOC-20120610583

PATIENT
  Age: 15 Year
  Sex: Male
  Weight: 63.8 kg

DRUGS (4)
  1. REMICADE [Suspect]
     Indication: CROHN^S DISEASE
     Route: 042
     Dates: start: 20091029, end: 20101209
  2. HUMIRA [Concomitant]
     Indication: CROHN^S DISEASE
     Dates: start: 20101215, end: 201112
  3. METHOTREXATE [Concomitant]
     Indication: CROHN^S DISEASE
     Dates: start: 20111020, end: 201112
  4. PREDNISONE [Concomitant]
     Indication: CROHN^S DISEASE
     Dates: start: 20111104

REACTIONS (1)
  - Crohn^s disease [Recovered/Resolved with Sequelae]
